FAERS Safety Report 5196002-0 (Version None)
Quarter: 2006Q4

REPORT INFORMATION
  Report Type: 
  Country: None (occurrence: None)
  Receive Date: 20061227
  Receipt Date: 20061227
  Transmission Date: 20070319
  Serious: Yes (Hospitalization)
  Sender: FDA-Public Use
  Company Number: None

PATIENT
  Age: 80 Year
  Sex: Female
  Weight: 65.318 kg

DRUGS (2)
  1. CLINDAMYCIN [Suspect]
     Indication: DENTAL OPERATION
     Dates: start: 20051011, end: 20051012
  2. CLINDAMYCIN [Suspect]
     Indication: PROPHYLAXIS
     Dates: start: 20051011, end: 20051012

REACTIONS (2)
  - BLOOD PRESSURE DECREASED [None]
  - MALAISE [None]
